FAERS Safety Report 17517579 (Version 1)
Quarter: 2020Q1

REPORT INFORMATION
  Report Type: Spontaneous
  Country: ES (occurrence: ES)
  Receive Date: 20200309
  Receipt Date: 20200309
  Transmission Date: 20200409
  Serious: Yes (Hospitalization, Other)
  Sender: FDA-Public Use
  Company Number: ES-MYLANLABS-2020M1023871

PATIENT
  Age: 30 Year
  Sex: Female

DRUGS (5)
  1. ETOPOSIDE. [Suspect]
     Active Substance: ETOPOSIDE
     Indication: EWING^S SARCOMA
     Dosage: FOUR CYCLES OF CHEMOTHERAPY EVAIA  + 5 CYCLES INCL. RADIATION THERAPY
     Route: 065
  2. VINCRISTINE [Suspect]
     Active Substance: VINCRISTINE
     Indication: EWING^S SARCOMA
     Dosage: UNK(FOUR CYCLES OF CHEMOTHERAPY EVAIA)
     Route: 065
  3. DOXORUBICIN [Suspect]
     Active Substance: DOXORUBICIN
     Indication: EWING^S SARCOMA
     Dosage: UNK(FOUR CYCLES OF CHEMOTHERAPY EVAIA)
     Route: 065
  4. IFOSFAMIDE. [Suspect]
     Active Substance: IFOSFAMIDE
     Indication: EWING^S SARCOMA
     Dosage: UNK(FOUR CYCLES OF CHEMOTHERAPY EVAIA)
     Route: 065
  5. ACTINOMYCIN D [Suspect]
     Active Substance: DACTINOMYCIN
     Indication: EWING^S SARCOMA
     Dosage: FOUR CYCLES OF CHEMOTHERAPY EVAIA
     Route: 065

REACTIONS (3)
  - Uterine rupture [Recovered/Resolved with Sequelae]
  - Ovarian failure [Recovered/Resolved with Sequelae]
  - Product use in unapproved indication [Unknown]
